FAERS Safety Report 6888833-3 (Version None)
Quarter: 2010Q3

REPORT INFORMATION
  Report Type: 
  Country: None (occurrence: None)
  Receive Date: 20100730
  Receipt Date: 20071108
  Transmission Date: 20110219
  Serious: No
  Sender: FDA-Public Use
  Company Number: US-PFIZER INC-2007095809

PATIENT
  Sex: Male
  Weight: 88.6 kg

DRUGS (6)
  1. LIPITOR [Suspect]
     Indication: HYPERCHOLESTEROLAEMIA
     Route: 048
  2. ALTACE [Concomitant]
  3. WELLBUTRIN [Concomitant]
  4. NORVASC [Concomitant]
  5. ATENOLOL [Concomitant]
  6. ALLOPURINOL [Concomitant]
     Indication: NEPHROLITHIASIS

REACTIONS (3)
  - BURNING SENSATION [None]
  - NEUROPATHY PERIPHERAL [None]
  - PARAESTHESIA [None]
